FAERS Safety Report 5615715-7 (Version None)
Quarter: 2008Q1

REPORT INFORMATION
  Report Type: 
  Country: None (occurrence: None)
  Receive Date: 20080201
  Receipt Date: 20080120
  Transmission Date: 20080703
  Serious: Yes (Hospitalization)
  Sender: FDA-Public Use
  Company Number: 2008S1001160

PATIENT
  Age: 39 Year
  Sex: Male

DRUGS (5)
  1. AZATHIOPRINE [Suspect]
     Indication: IMMUNOSUPPRESSION
     Dosage: 100 MG; DAILY;
  2. PREDNISONE TAB [Suspect]
     Indication: IMMUNOSUPPRESSION
     Dosage: 40 MG; DAILY;
  3. TACROLIMUS [Suspect]
     Indication: IMMUNOSUPPRESSION
     Dosage: 1 MG; EVERY MORNING;, 2 MG; QPM;
  4. ANTIBACTERIALS FOR SYSTEMIC USE [Concomitant]
  5. CORTICOSTEROIDS [Concomitant]

REACTIONS (11)
  - ASPERGILLOSIS [None]
  - BLOOD BETA-D-GLUCAN INCREASED [None]
  - ERYTHEMA [None]
  - HEPATIC FUNCTION ABNORMAL [None]
  - INFLAMMATION [None]
  - NECROSIS [None]
  - OEDEMA PERIPHERAL [None]
  - PAIN OF SKIN [None]
  - SKIN DISCOLOURATION [None]
  - SKIN LESION [None]
  - TENDERNESS [None]
